FAERS Safety Report 7999639-6 (Version None)
Quarter: 2011Q4

REPORT INFORMATION
  Report Type: 
  Country: None (occurrence: None)
  Receive Date: 20111221
  Receipt Date: 20111213
  Transmission Date: 20120403
  Serious: Yes (Hospitalization)
  Sender: FDA-Public Use
  Company Number: BR-ASTRAZENECA-2010SE44420

PATIENT
  Age: 58 Year
  Sex: Female
  Weight: 62 kg

DRUGS (10)
  1. SYMBICORT [Suspect]
     Dosage: 320/9 MCG PRN
     Route: 055
     Dates: start: 20100901
  2. ANADOR [Concomitant]
     Indication: PROCEDURAL PAIN
     Route: 048
     Dates: start: 20100901
  3. LABIRIN [Concomitant]
     Indication: LABYRINTHITIS
     Route: 048
  4. UNKNOWN [Concomitant]
     Indication: GLAUCOMA
     Dosage: BID
     Route: 047
  5. SYMBICORT [Suspect]
     Indication: ASTHMA
     Dosage: 320/9 MCG PRN
     Route: 055
     Dates: start: 20050101, end: 20100901
  6. LORAX [Concomitant]
     Indication: DEPRESSION
     Route: 048
     Dates: start: 20100301
  7. ENALAPRIL MALEATE [Concomitant]
     Indication: HYPERTENSION
     Route: 048
  8. CITALOPRAM [Concomitant]
     Indication: DEPRESSION
     Route: 048
     Dates: start: 20100301
  9. CITALOPRAM [Concomitant]
     Indication: PANIC DISORDER
     Route: 048
     Dates: start: 20100301
  10. LORAX [Concomitant]
     Indication: PANIC DISORDER
     Route: 048
     Dates: start: 20100301

REACTIONS (14)
  - WHEEZING [None]
  - FALL [None]
  - FACE INJURY [None]
  - DRUG DOSE OMISSION [None]
  - UPPER LIMB FRACTURE [None]
  - IRRITABILITY [None]
  - JOINT INJURY [None]
  - OEDEMA PERIPHERAL [None]
  - BLOOD PRESSURE INCREASED [None]
  - NASOPHARYNGITIS [None]
  - JOINT RANGE OF MOTION DECREASED [None]
  - TREMOR [None]
  - DYSPNOEA [None]
  - MUSCULOSKELETAL PAIN [None]
